FAERS Safety Report 9674867 (Version 2)
Quarter: 2013Q4

REPORT INFORMATION
  Report Type: Report from Study
  Country: BR (occurrence: BR)
  Receive Date: 20131107
  Receipt Date: 20131205
  Transmission Date: 20140711
  Serious: Yes (Other)
  Sender: FDA-Public Use
  Company Number: PHHY2013BR126468

PATIENT
  Sex: Female

DRUGS (5)
  1. DIOVAN [Suspect]
     Indication: HYPERTENSION
     Dosage: 0.5 TABLET (320 MG) IN THE MORNING AND IN THE NIGHT
     Route: 048
     Dates: start: 20050407
  2. AMLODIPINE SANDOZ [Suspect]
     Dosage: 10 MG, UNK
  3. CAPTOPRIL SANDOZ [Suspect]
     Dosage: UNK UKN, UNK
  4. ATENSINA [Concomitant]
     Indication: HYPERTENSION
     Dosage: 0.100 ML/30 TABLETS (AS REPORTED), UNK
  5. INDAPAMIDE [Concomitant]
     Dosage: 1.5 MG, UNK

REACTIONS (5)
  - Asthma [Recovering/Resolving]
  - Blood pressure increased [Recovering/Resolving]
  - Local swelling [Recovering/Resolving]
  - Fear [Unknown]
  - Drug ineffective [Unknown]
